FAERS Safety Report 9201646 (Version 1)
Quarter: 2013Q2

REPORT INFORMATION
  Report Type: Spontaneous
  Country: BR (occurrence: BR)
  Receive Date: 20130401
  Receipt Date: 20130401
  Transmission Date: 20140414
  Serious: Yes (Other)
  Sender: FDA-Public Use
  Company Number: PHHY2013BR030885

PATIENT
  Age: 72 Year
  Sex: Female

DRUGS (3)
  1. APRESOLINE [Suspect]
     Indication: ARRHYTHMIA
     Dosage: 3 DF (25 MG), DAILY
     Route: 048
  2. APRESOLINE [Suspect]
     Dosage: 0.5 DF (50 MG SPLIT IN HALF), UNK
  3. SELOZOK [Suspect]

REACTIONS (3)
  - Blood pressure fluctuation [Unknown]
  - Tremor [Recovering/Resolving]
  - Wrong technique in drug usage process [Unknown]
